FAERS Safety Report 7382452-0 (Version None)
Quarter: 2011Q1

REPORT INFORMATION
  Report Type: 
  Country: None (occurrence: None)
  Receive Date: 20110329
  Receipt Date: 20110228
  Transmission Date: 20110831
  Serious: Yes (Hospitalization, Other)
  Sender: FDA-Public Use
  Company Number: US-BAYER-2011-003445

PATIENT
  Sex: Female
  Weight: 99.773 kg

DRUGS (1)
  1. YAZ [Suspect]
     Indication: MENSTRUATION IRREGULAR
     Dosage: UNK
     Dates: start: 20100501, end: 20100801

REACTIONS (5)
  - PAIN [None]
  - DEFORMITY [None]
  - PULMONARY EMBOLISM [None]
  - THROMBOSIS [None]
  - DISABILITY [None]
